FAERS Safety Report 18570506 (Version 1)
Quarter: 2020Q4

REPORT INFORMATION
  Report Type: Report from Study
  Country: AT (occurrence: AT)
  Receive Date: 20201202
  Receipt Date: 20201202
  Transmission Date: 20210114
  Serious: Yes (Other)
  Sender: FDA-Public Use
  Company Number: AT-MYLANLABS-2020M1097515

PATIENT
  Age: 75 Year
  Sex: Male

DRUGS (11)
  1. PACLITAXEL. [Suspect]
     Active Substance: PACLITAXEL
     Dosage: 150.77 MG, UNKNOWN
     Route: 042
     Dates: start: 20170118
  2. PACLITAXEL. [Suspect]
     Active Substance: PACLITAXEL
     Dosage: 150.77 MG, UNKNOWN
     Route: 042
     Dates: start: 20170306
  3. PACLITAXEL. [Suspect]
     Active Substance: PACLITAXEL
     Dosage: 150.77 MG, UNKNOWN
     Route: 042
     Dates: start: 20170208
  4. PACLITAXEL. [Suspect]
     Active Substance: PACLITAXEL
     Dosage: 150.77 MG, UNKNOWN
     Route: 042
     Dates: start: 20170110
  5. PACLITAXEL. [Suspect]
     Active Substance: PACLITAXEL
     Dosage: 150.77 MG, UNKNOWN
     Route: 042
     Dates: start: 20161220
  6. PACLITAXEL. [Suspect]
     Active Substance: PACLITAXEL
     Indication: GASTRIC CANCER
     Dosage: 150.77 MG, UNKNOWN
     Route: 042
     Dates: start: 20161212
  7. RAMUCIRUMAB [Suspect]
     Active Substance: RAMUCIRUMAB
     Dosage: 616 MG, UNKNOWN
     Route: 042
     Dates: start: 20170306, end: 20170414
  8. PACLITAXEL. [Suspect]
     Active Substance: PACLITAXEL
     Dosage: 150.77 MG, UNKNOWN
     Route: 042
     Dates: start: 20161227
  9. RAMUCIRUMAB [Suspect]
     Active Substance: RAMUCIRUMAB
     Indication: GASTRIC CANCER
     Dosage: UNK, UNKNOWN
     Route: 042
  10. RAMUCIRUMAB [Suspect]
     Active Substance: RAMUCIRUMAB
     Dosage: 616 MG, UNKNOWN
     Route: 042
     Dates: start: 20170414, end: 20170414
  11. RAMUCIRUMAB [Suspect]
     Active Substance: RAMUCIRUMAB
     Dosage: 616 MG, UNKNOWN
     Route: 042
     Dates: start: 20161227

REACTIONS (4)
  - Thrombocytopenia [Recovered/Resolved]
  - Epistaxis [Recovered/Resolved]
  - Neutropenia [Recovered/Resolved]
  - Osteoarthritis [Not Recovered/Not Resolved]

NARRATIVE: CASE EVENT DATE: 20161227
